FAERS Safety Report 19065689 (Version 1)
Quarter: 2021Q1

REPORT INFORMATION
  Report Type: Spontaneous
  Country: US (occurrence: US)
  Receive Date: 20210327
  Receipt Date: 20210327
  Transmission Date: 20210420
  Serious: Yes (Life-Threatening, Hospitalization, Other)
  Sender: FDA-Public Use
  Company Number: US-ACCORD-220123

PATIENT
  Age: 48 Year
  Sex: Male

DRUGS (3)
  1. HYDROCODONE [Suspect]
     Active Substance: HYDROCODONE
  2. CLONAZEPAM. [Suspect]
     Active Substance: CLONAZEPAM
  3. PARACETAMOL [Suspect]
     Active Substance: ACETAMINOPHEN

REACTIONS (7)
  - Hypoxia [Recovered/Resolved]
  - Intentional overdose [Unknown]
  - Toxicity to various agents [Unknown]
  - Bradypnoea [Recovered/Resolved]
  - Respiratory depression [Recovered/Resolved]
  - Drug level increased [Recovering/Resolving]
  - Depressed level of consciousness [Recovered/Resolved]
